FAERS Safety Report 7672687-1 (Version None)
Quarter: 2011Q3

REPORT INFORMATION
  Report Type: 
  Country: None (occurrence: None)
  Receive Date: 20110809
  Receipt Date: 20110804
  Transmission Date: 20111222
  Serious: Yes (Death)
  Sender: FDA-Public Use
  Company Number: PHHY2011GB70764

PATIENT
  Sex: Male

DRUGS (5)
  1. VALPROATE SODIUM [Concomitant]
  2. LAMOTRIGINE [Concomitant]
  3. TOPIRAMATE [Suspect]
     Dosage: FOR TWO MONTHS
  4. PHENYTOIN [Concomitant]
  5. TOPIRAMATE [Suspect]
     Indication: EPILEPSY
     Dosage: FOR ONE MONTH

REACTIONS (2)
  - RENAL FAILURE [None]
  - SEPSIS [None]
